FAERS Safety Report 9554022 (Version 2)
Quarter: 2013Q4

REPORT INFORMATION
  Report Type: Report from Study
  Country: BE (occurrence: BE)
  Receive Date: 20130925
  Receipt Date: 20131024
  Transmission Date: 20140711
  Serious: Yes (Hospitalization)
  Sender: FDA-Public Use
  Company Number: BE-GLAXOSMITHKLINE-B0906250A

PATIENT
  Age: 74 Year
  Sex: Female
  Weight: 56 kg

DRUGS (12)
  1. PAZOPANIB [Suspect]
     Indication: OVARIAN CANCER
     Dosage: 800MG PER DAY
     Route: 048
     Dates: start: 20130426, end: 20130629
  2. CARBOPLATIN [Suspect]
     Indication: OVARIAN CANCER
     Dosage: 128MG WEEKLY
     Route: 042
     Dates: start: 20130418
  3. PACLITAXEL [Suspect]
     Indication: OVARIAN CANCER
     Dosage: 46MG WEEKLY
     Route: 042
     Dates: start: 20130418
  4. OLMETEC [Concomitant]
     Indication: HYPERTENSION
     Dosage: 20MG PER DAY
     Route: 048
  5. GLUCOPHAGE [Concomitant]
     Indication: DIABETES MELLITUS
     Dosage: 800MG THREE TIMES PER DAY
     Route: 048
     Dates: start: 2008
  6. CRESTOR [Concomitant]
     Indication: HYPERCHOLESTEROLAEMIA
     Dosage: 30MG PER DAY
     Route: 048
     Dates: start: 2008
  7. GLURENORM [Concomitant]
     Indication: DIABETES MELLITUS
     Dosage: 30MG TWICE PER DAY
     Route: 048
     Dates: start: 2001
  8. LORMETAZEPAM [Concomitant]
     Indication: INSOMNIA
     Dosage: 2MG AS REQUIRED
     Route: 048
     Dates: start: 2010
  9. GALVUS [Concomitant]
     Indication: DIABETES MELLITUS
     Dosage: 60MG PER DAY
     Route: 048
     Dates: start: 2008
  10. DAFALGAN [Concomitant]
     Dosage: 1G AS REQUIRED
  11. SERTRALINE [Concomitant]
     Indication: DEPRESSION
     Dosage: 50MG PER DAY
     Route: 048
  12. PANTOPRAZOLE [Concomitant]

REACTIONS (1)
  - Fistula [Recovered/Resolved]
